FAERS Safety Report 4660596-1 (Version None)
Quarter: 2005Q2

REPORT INFORMATION
  Report Type: 
  Country: None (occurrence: None)
  Receive Date: 20050512
  Receipt Date: 20050428
  Transmission Date: 20051028
  Serious: Yes (Disabling)
  Sender: FDA-Public Use
  Company Number: 2005SE02643

PATIENT
  Age: 46 Year
  Sex: Male
  Weight: 72.3 kg

DRUGS (5)
  1. ATACAND HCT [Suspect]
     Indication: HYPERTENSION
     Route: 048
     Dates: start: 20000101
  2. PROBECID [Concomitant]
     Route: 048
     Dates: start: 20050201
  3. LIPITOR [Concomitant]
     Route: 048
     Dates: start: 20000101
  4. PLAVIX [Concomitant]
     Route: 048
     Dates: start: 20041201
  5. BUMETANIDE [Concomitant]
     Dates: start: 20041201

REACTIONS (10)
  - ABNORMAL SENSATION IN EYE [None]
  - EJACULATION DISORDER [None]
  - ERECTILE DYSFUNCTION [None]
  - EYE PAIN [None]
  - MASS [None]
  - PENIS DISORDER [None]
  - PROSTATIC DISORDER [None]
  - SENSATION OF PRESSURE [None]
  - TENSION [None]
  - VISION BLURRED [None]
